FAERS Safety Report 4331740-0 (Version None)
Quarter: 2004Q2

REPORT INFORMATION
  Report Type: 
  Country: None (occurrence: None)
  Receive Date: 20040405
  Receipt Date: 20030513
  Transmission Date: 20050107
  Serious: No
  Sender: FDA-Public Use
  Company Number: US-GLAXOSMITHKLINE-A0408668A

PATIENT
  Age: 52 Year
  Sex: Male

DRUGS (2)
  1. FLOVENT [Suspect]
     Indication: ILL-DEFINED DISORDER
     Dosage: 2PUFF TWICE PER DAY
     Route: 055
     Dates: start: 20030416, end: 20030512
  2. ALLEGRA [Concomitant]
     Route: 065

REACTIONS (4)
  - DYSPHONIA [None]
  - HOARSENESS [None]
  - HYPOAESTHESIA [None]
  - TONGUE BLACK HAIRY [None]
